FAERS Safety Report 23181528 (Version 1)
Quarter: 2023Q4

REPORT INFORMATION
  Report Type: Spontaneous
  Country: US (occurrence: None)
  Receive Date: 20231113
  Receipt Date: 20231113
  Transmission Date: 20240110
  Serious: Yes (Disabling, Other)
  Sender: FDA-Public Use
  Company Number: None

PATIENT
  Age: 48 Year
  Sex: Male
  Weight: 88.65 kg

DRUGS (1)
  1. ROCK SAUCE [Suspect]
     Active Substance: CAPSICUM\MENTHOL\METHYL SALICYLATE
     Indication: Myalgia
     Route: 061
     Dates: start: 20231015, end: 20231015

REACTIONS (4)
  - Inadequate analgesia [None]
  - Genital pain [None]
  - Pain [None]
  - Genital blister [None]

NARRATIVE: CASE EVENT DATE: 20231015
